FAERS Safety Report 23894141 (Version 1)
Quarter: 2024Q2

REPORT INFORMATION
  Report Type: Spontaneous
  Country: FR (occurrence: FR)
  Receive Date: 20240524
  Receipt Date: 20240524
  Transmission Date: 20240716
  Serious: Yes (Hospitalization, Other)
  Sender: FDA-Public Use
  Company Number: None

PATIENT
  Age: 80 Year
  Sex: Female

DRUGS (21)
  1. PANTOPRAZOLE SODIUM [Suspect]
     Active Substance: PANTOPRAZOLE SODIUM
     Indication: Product used for unknown indication
     Dosage: UNK
     Route: 048
     Dates: start: 20061129, end: 20061216
  2. RISPERIDONE [Suspect]
     Active Substance: RISPERIDONE
     Indication: Product used for unknown indication
     Dosage: 0.5 MG, QD
     Route: 048
     Dates: start: 20060615, end: 20061216
  3. DONEPEZIL HYDROCHLORIDE [Suspect]
     Active Substance: DONEPEZIL HYDROCHLORIDE
     Indication: Dementia Alzheimer^s type
     Dosage: 10 MG, QD
     Route: 048
     Dates: start: 20060615, end: 20061216
  4. SUFENTANIL [Suspect]
     Active Substance: SUFENTANIL
     Indication: Product used for unknown indication
     Dosage: 10 UG, 1X
     Route: 042
     Dates: start: 20061129, end: 20061129
  5. LOVENOX [Suspect]
     Active Substance: ENOXAPARIN SODIUM
     Indication: Product used for unknown indication
     Dosage: 4000 IU, QD
     Route: 058
     Dates: start: 20061129, end: 20061216
  6. PROPOFOL [Suspect]
     Active Substance: PROPOFOL
     Indication: Product used for unknown indication
     Dosage: 100 MG, 1X
     Route: 042
     Dates: start: 20061129, end: 20061129
  7. CHONDROITIN SULFATE (CHICKEN) [Suspect]
     Active Substance: CHONDROITIN SULFATE (CHICKEN)
     Indication: Product used for unknown indication
     Dosage: 3 DF, QD
     Route: 048
     Dates: start: 20060615, end: 20061216
  8. ACETAMINOPHEN\PROPOXYPHENE HYDROCHLORIDE [Suspect]
     Active Substance: ACETAMINOPHEN\PROPOXYPHENE HYDROCHLORIDE
     Indication: Product used for unknown indication
     Dosage: 1290 MG, QD
     Route: 048
     Dates: start: 20061129, end: 20061216
  9. DEXTRAN SULFATE SODIUM\PHENYLBUTAZONE [Suspect]
     Active Substance: DEXTRAN SULFATE SODIUM\PHENYLBUTAZONE
     Indication: Product used for unknown indication
     Dosage: UNK
     Route: 061
     Dates: start: 20061015, end: 20061216
  10. ACUPAN [Suspect]
     Active Substance: NEFOPAM HYDROCHLORIDE
     Indication: Product used for unknown indication
     Dosage: 20 MG
     Route: 042
     Dates: start: 20061130, end: 20061216
  11. ARIXTRA [Concomitant]
     Active Substance: FONDAPARINUX SODIUM
     Indication: Product used for unknown indication
     Dosage: UNK
     Route: 058
  12. PRIMPERAN [Concomitant]
     Active Substance: METOCLOPRAMIDE HYDROCHLORIDE
     Indication: Product used for unknown indication
     Dosage: UNK
  13. TEICOPLANIN [Concomitant]
     Active Substance: TEICOPLANIN
     Indication: Product used for unknown indication
     Dosage: UNK
  14. ACETAMINOPHEN [Concomitant]
     Active Substance: ACETAMINOPHEN
     Indication: Product used for unknown indication
     Dosage: UNK
  15. ULCARE [Concomitant]
     Indication: Product used for unknown indication
     Dosage: UNK
     Route: 048
  16. CEFAMANDOLE [Concomitant]
     Active Substance: CEFAMANDOLE
     Indication: Product used for unknown indication
     Dosage: UNK
  17. LENOGRASTIM [Concomitant]
     Active Substance: LENOGRASTIM
     Indication: Product used for unknown indication
     Dosage: UNK
  18. RABEPRAZOLE SODIUM [Concomitant]
     Active Substance: RABEPRAZOLE SODIUM
     Indication: Product used for unknown indication
     Dosage: UNK
  19. CLAVULANATE POTASSIUM\TICARCILLIN DISODIUM [Concomitant]
     Active Substance: CLAVULANATE POTASSIUM\TICARCILLIN DISODIUM
     Indication: Product used for unknown indication
     Dosage: UNK
     Route: 042
  20. DAFALGAN [Concomitant]
     Active Substance: ACETAMINOPHEN
     Indication: Product used for unknown indication
     Dosage: 3 G, QD
     Route: 048
  21. ONDANSETRON [Concomitant]
     Active Substance: ONDANSETRON
     Indication: Product used for unknown indication
     Dosage: 2 MG, 1X
     Route: 042
     Dates: start: 20061129, end: 20061129

REACTIONS (2)
  - Agranulocytosis [Recovering/Resolving]
  - Anaemia [Not Recovered/Not Resolved]

NARRATIVE: CASE EVENT DATE: 20061216
